FAERS Safety Report 13923459 (Version 1)
Quarter: 2017Q3

REPORT INFORMATION
  Report Type: Spontaneous
  Country: US (occurrence: US)
  Receive Date: 20170830
  Receipt Date: 20170830
  Transmission Date: 20171127
  Serious: Yes (Life-Threatening, Hospitalization, Other)
  Sender: FDA-Public Use
  Company Number: None

PATIENT
  Age: 33 Year
  Sex: Female
  Weight: 64.8 kg

DRUGS (3)
  1. ERGOCALCIFEROL. [Concomitant]
     Active Substance: ERGOCALCIFEROL
  2. RIVAROABAN [Concomitant]
  3. CABERGOLINE. [Suspect]
     Active Substance: CABERGOLINE
     Indication: PITUITARY TUMOUR BENIGN
     Dosage: ?          QUANTITY:2 TABLET(S);OTHER FREQUENCY:EVERY WEEK;?
     Route: 048
     Dates: start: 20150101, end: 20170830

REACTIONS (1)
  - Pulmonary thrombosis [None]

NARRATIVE: CASE EVENT DATE: 20170825
